FAERS Safety Report 8197942-0 (Version None)
Quarter: 2012Q1

REPORT INFORMATION
  Report Type: 
  Country: None (occurrence: None)
  Receive Date: 20120309
  Receipt Date: 20120216
  Transmission Date: 20120608
  Serious: No
  Sender: FDA-Public Use
  Company Number: US-AMGEN-USASP2011014898

PATIENT
  Age: 78 Year
  Sex: Male

DRUGS (2)
  1. XGEVA [Suspect]
     Indication: PRODUCT USED FOR UNKNOWN INDICATION
     Dosage: 120 MG, UNK
     Route: 058
     Dates: start: 20110309
  2. DEGARELIX [Concomitant]
     Dosage: 80 MG, UNK
     Route: 058

REACTIONS (2)
  - INJECTION SITE ERYTHEMA [None]
  - RASH [None]
